FAERS Safety Report 7043972-1 (Version None)
Quarter: 2010Q4

REPORT INFORMATION
  Report Type: 
  Country: None (occurrence: None)
  Receive Date: 20101012
  Receipt Date: 20101012
  Transmission Date: 20110411
  Serious: No
  Sender: FDA-Public Use
  Company Number: None

PATIENT
  Age: 62 Year
  Sex: Male
  Weight: 105.2345 kg

DRUGS (1)
  1. LEVAQUIN [Suspect]
     Indication: INFECTION PROPHYLAXIS
     Dosage: 500MG 1 DY PO
     Route: 048
     Dates: start: 20100812, end: 20100822

REACTIONS (3)
  - POST-TRAUMATIC PAIN [None]
  - TENDON INJURY [None]
  - TENDON RUPTURE [None]
